FAERS Safety Report 5295996-2 (Version None)
Quarter: 2007Q2

REPORT INFORMATION
  Report Type: 
  Country: None (occurrence: None)
  Receive Date: 20070413
  Receipt Date: 20070409
  Transmission Date: 20071010
  Serious: Yes (Death)
  Sender: FDA-Public Use
  Company Number: US-AVENTIS-200712496US

PATIENT
  Sex: Male

DRUGS (21)
  1. LANTUS [Suspect]
     Dates: start: 20060101
  2. DURADEX [Concomitant]
     Dosage: DOSE: UNK
  3. BENICAR [Concomitant]
  4. BUMETANIDE [Concomitant]
  5. BUMETANIDE [Concomitant]
  6. MELOXICAM [Concomitant]
  7. METOCLOPRAMIDE [Concomitant]
  8. LYRICA [Concomitant]
  9. ALBUTEROL [Concomitant]
     Dosage: DOSE: UNK
     Route: 055
  10. NEXIUM [Concomitant]
     Dosage: DOSE: UNK
  11. ALLOPURINOL [Concomitant]
  12. BYETTA [Concomitant]
  13. CLONAZEPAM [Concomitant]
  14. ZETIA [Concomitant]
  15. AVAPRO [Concomitant]
  16. SINGULAIR [Concomitant]
  17. TOPROL-XL [Concomitant]
  18. AMARYL [Concomitant]
  19. NOVOLOG [Concomitant]
  20. NOVOLOG [Concomitant]
  21. UNKNOWN DRUG [Concomitant]
     Dosage: DOSE: UNK

REACTIONS (2)
  - BURNING SENSATION [None]
  - DEATH [None]
